FAERS Safety Report 12257861 (Version 1)
Quarter: 2016Q2

REPORT INFORMATION
  Report Type: Spontaneous
  Country: US (occurrence: US)
  Receive Date: 20160412
  Receipt Date: 20160412
  Transmission Date: 20160815
  Serious: Yes (Other)
  Sender: FDA-Public Use
  Company Number: US-PFIZER INC-2016200039

PATIENT
  Age: 76 Year
  Sex: Male
  Weight: 107 kg

DRUGS (2)
  1. TIKOSYN [Suspect]
     Active Substance: DOFETILIDE
     Dosage: 0.250 UG, 2X/DAY
  2. TIKOSYN [Suspect]
     Active Substance: DOFETILIDE
     Indication: ATRIAL FIBRILLATION
     Dosage: UNK
     Dates: start: 201509

REACTIONS (4)
  - Fall [Unknown]
  - Rib fracture [Unknown]
  - Renal disorder [Unknown]
  - Drug effect incomplete [Unknown]
